FAERS Safety Report 21904885 (Version 1)
Quarter: 2023Q1

REPORT INFORMATION
  Report Type: Spontaneous
  Country: NL (occurrence: NL)
  Receive Date: 20230124
  Receipt Date: 20230124
  Transmission Date: 20230418
  Serious: Yes (Life-Threatening)
  Sender: FDA-Public Use
  Company Number: None

PATIENT
  Sex: Female
  Weight: 52 kg

DRUGS (14)
  1. ACETAMINOPHEN [Suspect]
     Active Substance: ACETAMINOPHEN
     Indication: Arthralgia
     Dosage: 6 TIMES A DAY 500 MG
     Dates: start: 20221208, end: 20221214
  2. ACETAMINOPHEN [Suspect]
     Active Substance: ACETAMINOPHEN
     Indication: Pyrexia
  3. FLUCLOXACILLIN SODIUM [Suspect]
     Active Substance: FLUCLOXACILLIN SODIUM
     Indication: Pyrexia
     Dosage: 4 TIMES PER DAY 1500 MG
     Dates: start: 20221212, end: 20221214
  4. FLUCLOXACILLIN SODIUM [Suspect]
     Active Substance: FLUCLOXACILLIN SODIUM
     Indication: Joint swelling
  5. ISAVUCONAZOLE INFUSION  POWDER 200MG / Brand name not specified [Concomitant]
     Indication: Product used for unknown indication
     Dosage: 1 TIME PER DAY 270 MG IV
     Route: 042
  6. AMphotericin B INF CONC 5MG/ML (LIPIDEN COMPLEX)/ Brand name not speci [Concomitant]
     Indication: Product used for unknown indication
     Dosage: SOLUTION FOR INFUSION 5 MG/ML (MILLIGRAM PER MILLILITER)
  7. VALACICLOOVIR TABLET  500MG / Brand name not specified [Concomitant]
     Indication: Product used for unknown indication
     Dosage: TABLET, 500 MG (MILLIGRAM)
  8. MACROGOL  POWDER FOR DRINK 10G / Brand name not specified [Concomitant]
     Indication: Product used for unknown indication
     Dosage: POWDER FOR DRINK 10G (GRAM)
  9. FUROSEMIDE INFUSION LIQUID 10MG/ML / Brand name not specified [Concomitant]
     Indication: Product used for unknown indication
     Dosage: SOLUTION FOR INFUSION 10 MG/ML
  10. ESKETAMINE INFUSION LIQUID 5MG/ML / Brand name not specified [Concomitant]
     Indication: Product used for unknown indication
     Dosage: SOLUTION FOR INFUSION 5 MG/ML
  11. GRANISTRON INJECTION LIQUID 1MG/ML / Brand name not specified [Concomitant]
     Indication: Product used for unknown indication
     Dosage: SOLUTION FOR INJECTION 1 MG/ML
  12. CEFTRIAXON INFUSION POWDER 2000MG / Brand name not specified [Concomitant]
     Indication: Product used for unknown indication
     Dosage: ONCE A DAY 4000 MG
  13. CLONIDINE INFUSION LIQUID 0,01MG/ML / Brand name not specified [Concomitant]
     Indication: Product used for unknown indication
     Dosage: INFUSION FLUID 0,01 MG/ML
  14. SULFAMETHOXAZOLE\TRIMETHOPRIM [Concomitant]
     Active Substance: SULFAMETHOXAZOLE\TRIMETHOPRIM
     Indication: Product used for unknown indication
     Dosage: ONCE A DAY 960 MG (3 DAYS / 4 REST DAYS PER WEEK) FRIDAY-SATURDAY, SUNDAY

REACTIONS (2)
  - Drug interaction [Recovered/Resolved]
  - Metabolic acidosis [Recovered/Resolved]
